FAERS Safety Report 4300944-5 (Version None)
Quarter: 2004Q1

REPORT INFORMATION
  Report Type: 
  Country: None (occurrence: None)
  Receive Date: 20040219
  Receipt Date: 20040211
  Transmission Date: 20041129
  Serious: Yes (Death, Hospitalization)
  Sender: FDA-Public Use
  Company Number: 2004198895GB

PATIENT
  Age: 59 Year
  Sex: Female
  Weight: 50 kg

DRUGS (4)
  1. FRAGMIN [Suspect]
     Indication: VENOUS THROMBOSIS LIMB
     Dosage: 10000 IU, DAILY, SUBCUTANEOUS
     Route: 058
     Dates: start: 20031201, end: 20031226
  2. RANITIDINE [Concomitant]
  3. CISPLATIN [Concomitant]
  4. ADRIAMYCIN (DOXORUBICIN) [Concomitant]

REACTIONS (9)
  - CARDIAC ARREST [None]
  - CIRCULATORY COLLAPSE [None]
  - DEEP VEIN THROMBOSIS [None]
  - DEHYDRATION [None]
  - GASTROINTESTINAL HAEMORRHAGE [None]
  - MELAENA [None]
  - RECURRENT CANCER [None]
  - UTERINE CANCER [None]
  - VOMITING [None]
